FAERS Safety Report 8200637-8 (Version None)
Quarter: 2012Q1

REPORT INFORMATION
  Report Type: 
  Country: None (occurrence: None)
  Receive Date: 20120312
  Receipt Date: 20120308
  Transmission Date: 20120608
  Serious: Yes (Death, Life-Threatening, Hospitalization)
  Sender: FDA-Public Use
  Company Number: DE-B.I. PHARMACEUTICALS,INC./RIDGEFIELD-2011-DE-06636DE

PATIENT
  Sex: Male
  Weight: 69 kg

DRUGS (3)
  1. PRADAXA [Suspect]
     Indication: ATRIAL FIBRILLATION
     Dosage: 220 MG
     Route: 048
  2. RAMIPRIL [Concomitant]
     Dosage: 10 MG
     Route: 048
  3. CARVEDILOL [Concomitant]
     Dosage: 12.5 MG
     Route: 048

REACTIONS (3)
  - CARDIAC ARREST [None]
  - RESUSCITATION [None]
  - MULTI-ORGAN FAILURE [None]
